FAERS Safety Report 8300993-6 (Version None)
Quarter: 2012Q2

REPORT INFORMATION
  Report Type: 
  Country: None (occurrence: None)
  Receive Date: 20120420
  Receipt Date: 20120417
  Transmission Date: 20120825
  Serious: Yes (Death, Hospitalization, Other)
  Sender: FDA-Public Use
  Company Number: US-AMGEN-USASP2011002045

PATIENT
  Age: 91 Year
  Sex: Female

DRUGS (22)
  1. CLONIDINE [Concomitant]
     Dosage: UNK
  2. OXYCODONE AND ACETAMINOPHEN [Concomitant]
  3. POTASSIUM CHLORIDE [Concomitant]
     Dosage: UNK
  4. ALLOPURINOL [Concomitant]
     Dosage: 1 MG, UNK
  5. TYLENOL (CAPLET) [Concomitant]
     Dosage: UNK
  6. BUMEX [Concomitant]
     Dosage: 1 MG, UNK
  7. CALCITONIN                         /00371903/ [Concomitant]
     Dosage: 1 IU, UNK
     Route: 045
  8. NORVASC [Concomitant]
     Dosage: 1 MG, UNK
  9. COREG [Concomitant]
     Dosage: UNK
  10. CLINDAMYCIN [Concomitant]
     Dosage: UNK UNK, PRN
  11. PRANDIN                            /01393601/ [Concomitant]
     Dosage: UNK
  12. DIGOXIN [Concomitant]
     Dosage: UNK
  13. MULTIVITAMIN                       /00097801/ [Concomitant]
     Dosage: UNK
  14. NITROGLYCERIN ACC [Concomitant]
     Dosage: UNK UNK, PRN
     Route: 060
  15. RESTORIL [Concomitant]
     Dosage: UNK
  16. ARANESP [Suspect]
     Indication: MYELODYSPLASTIC SYNDROME
     Dosage: 500 MUG, Q2WK
     Route: 058
  17. CALCIUM + VITAMIN D [Concomitant]
     Dosage: 1 MG, UNK
  18. SIMVASTATIN [Concomitant]
     Dosage: UNK
  19. MIRAPEX                            /01356401/ [Concomitant]
     Dosage: 1 MG, UNK
  20. ONDANSETRON                        /00955302/ [Concomitant]
     Dosage: UNK UNK, PRN
  21. OMEPRAZOLE [Concomitant]
     Dosage: UNK
  22. FERROUS SULFATE TAB [Concomitant]
     Dosage: 1 MG, UNK

REACTIONS (8)
  - BLOOD COUNT ABNORMAL [None]
  - HAEMORRHAGE [None]
  - ARRHYTHMIA [None]
  - HOSPITALISATION [None]
  - RENAL NEOPLASM [None]
  - DEATH [None]
  - INTESTINAL ULCER [None]
  - MEMORY IMPAIRMENT [None]
